FAERS Safety Report 8856119 (Version 1)
Quarter: 2012Q4

REPORT INFORMATION
  Report Type: Spontaneous
  Country: US (occurrence: None)
  Receive Date: 20121023
  Receipt Date: 20121023
  Transmission Date: 20130627
  Serious: Yes (Hospitalization)
  Sender: FDA-Public Use
  Company Number: None

PATIENT
  Sex: Male
  Weight: 78.02 kg

DRUGS (1)
  1. DILTIAZEM ER [Suspect]
     Route: 048
     Dates: start: 20120915, end: 20121005

REACTIONS (3)
  - Rash [None]
  - Dizziness [None]
  - Syncope [None]
